FAERS Safety Report 22120264 (Version 3)
Quarter: 2023Q2

REPORT INFORMATION
  Report Type: Other
  Country: PK (occurrence: None)
  Receive Date: 20230321
  Receipt Date: 20230411
  Transmission Date: 20230721
  Serious: Yes (Death)
  Sender: FDA-Public Use
  Company Number: PK-ROCHE-3313996

PATIENT
  Age: 42 Year
  Sex: Male

DRUGS (3)
  1. AVASTIN [Suspect]
     Active Substance: BEVACIZUMAB
     Indication: Colorectal cancer metastatic
     Dosage: SOLUTION FORM
     Route: 042
     Dates: start: 20220919
  2. AVASTIN [Suspect]
     Active Substance: BEVACIZUMAB
     Route: 042
  3. AVASTIN [Suspect]
     Active Substance: BEVACIZUMAB
     Route: 042

REACTIONS (1)
  - Death [Fatal]
